FAERS Safety Report 6932369-8 (Version None)
Quarter: 2010Q3

REPORT INFORMATION
  Report Type: 
  Country: None (occurrence: None)
  Receive Date: 20100819
  Receipt Date: 20100809
  Transmission Date: 20110219
  Serious: Yes (Death)
  Sender: FDA-Public Use
  Company Number: TW-BAXTER-2010BH020563

PATIENT
  Sex: Female

DRUGS (8)
  1. DIANEAL [Suspect]
     Indication: PERITONEAL DIALYSIS
     Route: 033
     Dates: start: 20080801
  2. DIANEAL [Suspect]
     Route: 033
     Dates: start: 20080801
  3. DIANEAL [Suspect]
     Indication: PERITONEAL DIALYSIS
     Route: 033
     Dates: start: 20080801
  4. DIANEAL [Suspect]
     Route: 033
     Dates: start: 20080801
  5. EXTRANEAL [Suspect]
     Indication: PERITONEAL DIALYSIS
     Route: 033
     Dates: start: 20080801
  6. EXTRANEAL [Suspect]
     Route: 033
     Dates: start: 20080801
  7. NUTRINEAL [Suspect]
     Indication: PERITONEAL DIALYSIS
     Route: 033
     Dates: start: 20080801
  8. NUTRINEAL [Suspect]
     Route: 033
     Dates: start: 20080801

REACTIONS (1)
  - DEATH [None]
